FAERS Safety Report 5425980-7 (Version None)
Quarter: 2007Q3

REPORT INFORMATION
  Report Type: 
  Country: None (occurrence: None)
  Receive Date: 20070827
  Receipt Date: 20070822
  Transmission Date: 20080115
  Serious: Yes (Other)
  Sender: FDA-Public Use
  Company Number: CZ-BRISTOL-MYERS SQUIBB COMPANY-13873559

PATIENT
  Age: 3 Year
  Sex: Female

DRUGS (3)
  1. ETOPOSIDE [Suspect]
     Indication: NEUROBLASTOMA
  2. CARBOPLATIN [Suspect]
     Indication: NEUROBLASTOMA
  3. MELPHALAN [Suspect]
     Indication: NEUROBLASTOMA

REACTIONS (5)
  - HAIR DISORDER [None]
  - LEUKOPENIA [None]
  - RASH [None]
  - RASH ERYTHEMATOUS [None]
  - RASH PAPULAR [None]
